FAERS Safety Report 7483038-X (Version None)
Quarter: 2011Q2

REPORT INFORMATION
  Report Type: 
  Country: None (occurrence: None)
  Receive Date: 20110516
  Receipt Date: 20080811
  Transmission Date: 20111010
  Serious: Yes (Hospitalization, Other)
  Sender: FDA-Public Use
  Company Number: US-BAYER-200830399NA

PATIENT
  Age: 60 Year
  Sex: Male
  Weight: 113 kg

DRUGS (14)
  1. VERSED [Concomitant]
     Dosage: 2 MG, UNK
     Route: 042
     Dates: start: 20050418
  2. AVANDIA [Concomitant]
     Dosage: 8 MG, QD
     Route: 048
  3. PRINZIDE [Concomitant]
     Dosage: 4 MG, QD
     Route: 048
  4. SODIUM BICARBONATE [Concomitant]
     Dosage: 50
     Route: 042
     Dates: start: 20050418
  5. NITROGLYCERIN [Concomitant]
     Dosage: 25
     Route: 042
     Dates: start: 20050418
  6. LIPITOR [Concomitant]
     Dosage: 10 MG, QD
     Route: 048
  7. AMARYL [Concomitant]
     Dosage: 4 MG, QD
  8. TRASYLOL [Suspect]
     Indication: CORONARY ARTERY BYPASS
  9. LISINOPRIL [Concomitant]
     Dosage: 20/25MG ONE TAB EVERYDAY
     Route: 048
  10. FENTANYL [Concomitant]
  11. ATENOLOL [Concomitant]
     Dosage: 50 MG
  12. HEPARIN [Concomitant]
     Dosage: 68,000 UNITS
     Route: 042
     Dates: start: 20050418
  13. ANCEF [Concomitant]
     Dosage: 1 G, UNK
     Route: 042
     Dates: start: 20050418
  14. TRASYLOL [Suspect]
     Indication: AORTIC VALVE REPLACEMENT
     Dosage: 200 LOADING DOSE
     Route: 042
     Dates: start: 20050418

REACTIONS (12)
  - RENAL FAILURE [None]
  - RENAL INJURY [None]
  - INJURY [None]
  - EMOTIONAL DISTRESS [None]
  - FEAR [None]
  - UNEVALUABLE EVENT [None]
  - PAIN [None]
  - RENAL IMPAIRMENT [None]
  - MULTI-ORGAN FAILURE [None]
  - ANHEDONIA [None]
  - STRESS [None]
  - ANXIETY [None]
